FAERS Safety Report 4592693-3 (Version None)
Quarter: 2005Q1

REPORT INFORMATION
  Report Type: 
  Country: None (occurrence: None)
  Receive Date: 20050222
  Receipt Date: 20050210
  Transmission Date: 20050727
  Serious: Yes (Hospitalization, Other)
  Sender: FDA-Public Use
  Company Number: 2005-01-0968

PATIENT
  Age: 49 Year
  Sex: Female
  Weight: 47 kg

DRUGS (3)
  1. INTRON A [Suspect]
     Indication: HEPATITIS C
     Dosage: 6 MU 6-3X/WK INTRAMUSCULAR
     Route: 030
     Dates: start: 20041217, end: 20050127
  2. REBETOL [Suspect]
     Indication: HEPATITIS C
     Dosage: 400 MG ORAL
     Route: 048
     Dates: start: 20041222, end: 20050203
  3. ADACOLUMN APHERESIS DEVICE                (CELLULOSE ACETATE) [Concomitant]

REACTIONS (4)
  - CHRONIC INFLAMMATORY DEMYELINATING POLYRADICULONEUROPATHY [None]
  - HYPOAESTHESIA [None]
  - MUSCULAR WEAKNESS [None]
  - NON-HODGKIN'S LYMPHOMA [None]
